FAERS Safety Report 7517326-5 (Version None)
Quarter: 2011Q2

REPORT INFORMATION
  Report Type: 
  Country: None (occurrence: None)
  Receive Date: 20110601
  Receipt Date: 20110515
  Transmission Date: 20111010
  Serious: No
  Sender: FDA-Public Use
  Company Number: US-B.I. PHARMACEUTICALS,INC./RIDGEFIELD-2011-BP-05521BP

PATIENT
  Sex: Female

DRUGS (8)
  1. DIGOXIN [Concomitant]
     Indication: ATRIAL FIBRILLATION
     Dosage: 0.125 MG
     Route: 048
  2. LOVAZA [Concomitant]
     Indication: PROPHYLAXIS
     Dosage: 1200 MG
     Route: 048
  3. PRADAXA [Suspect]
     Indication: ATRIAL FIBRILLATION
     Dosage: 300 MG
     Route: 048
     Dates: start: 20110101
  4. CO Q10 [Concomitant]
     Indication: PROPHYLAXIS
     Dosage: 100 MG
     Route: 048
  5. COZAAR [Concomitant]
     Dosage: 100 MG
     Route: 048
  6. PREVACID [Concomitant]
     Dosage: 30 MG
     Route: 048
  7. BIOTIN [Concomitant]
     Indication: PROPHYLAXIS
     Dosage: 5000 MG
     Route: 048
  8. AVAPRO [Concomitant]
     Indication: HYPERTENSION

REACTIONS (15)
  - GINGIVAL BLEEDING [None]
  - DIARRHOEA [None]
  - CHEST DISCOMFORT [None]
  - MYALGIA [None]
  - ABDOMINAL PAIN LOWER [None]
  - MUSCLE STRAIN [None]
  - OESOPHAGEAL PAIN [None]
  - BACK PAIN [None]
  - POLLAKIURIA [None]
  - URETHRAL PAIN [None]
  - ABDOMINAL DISTENSION [None]
  - ABDOMINAL PAIN [None]
  - URETHRAL SPASM [None]
  - CONSTIPATION [None]
  - GASTROOESOPHAGEAL REFLUX DISEASE [None]
